FAERS Safety Report 13754419 (Version 1)
Quarter: 2017Q3

REPORT INFORMATION
  Report Type: Spontaneous
  Country: CN (occurrence: CN)
  Receive Date: 20170714
  Receipt Date: 20170714
  Transmission Date: 20171127
  Serious: Yes (Other)
  Sender: FDA-Public Use
  Company Number: CN-BAXTER-2017BAX027379

PATIENT
  Age: 43 Year
  Sex: Male
  Weight: 71 kg

DRUGS (1)
  1. SODIUM LACTATE RINGER^S INJECTION 500ML [Suspect]
     Active Substance: RINGER^S SOLUTION, LACTATED
     Indication: INFUSION
     Dosage: 400 ML OF DRUG WAS INJECTED OF 500 ML
     Route: 041
     Dates: start: 20170519, end: 20170519

REACTIONS (3)
  - Rash [Recovering/Resolving]
  - Urticaria [Recovering/Resolving]
  - Pruritus [Recovering/Resolving]

NARRATIVE: CASE EVENT DATE: 20170519
